FAERS Safety Report 24233636 (Version 1)
Quarter: 2024Q3

REPORT INFORMATION
  Report Type: Spontaneous
  Country: CO (occurrence: CO)
  Receive Date: 20240821
  Receipt Date: 20240821
  Transmission Date: 20241017
  Serious: Yes (Hospitalization, Other)
  Sender: SANOFI AVENTIS
  Company Number: CO-SA-2017SA207950

PATIENT
  Age: 45 Year
  Sex: Female

DRUGS (9)
  1. PREDNISONE [Suspect]
     Active Substance: PREDNISONE
     Indication: Immunosuppression
     Dosage: 10 MG,QD
  2. METHYLPREDNISOLONE [Suspect]
     Active Substance: METHYLPREDNISOLONE
     Indication: Immunosuppression
     Dosage: 500 MG,QD
  3. ANTI-THYMOCYTE GLOBULIN (RABBIT) NOS [Suspect]
     Active Substance: LAPINE T-LYMPHOCYTE IMMUNE GLOBULIN
     Indication: Immunosuppression
     Dosage: 5 MG/KG
  4. TACROLIMUS [Suspect]
     Active Substance: TACROLIMUS
     Indication: Immunosuppression
     Dosage: 8 MG,QD
  5. TACROLIMUS [Suspect]
     Active Substance: TACROLIMUS
     Dosage: 5 MG,QD
  6. TACROLIMUS [Suspect]
     Active Substance: TACROLIMUS
     Dosage: 5 MG,QD
  7. MYCOPHENOLATE SODIUM [Suspect]
     Active Substance: MYCOPHENOLATE SODIUM
     Indication: Immunosuppression
     Dosage: 720 MG,Q12H
  8. MYCOPHENOLATE SODIUM [Suspect]
     Active Substance: MYCOPHENOLATE SODIUM
     Dosage: 360 MG,Q8H
  9. MYCOPHENOLATE SODIUM [Suspect]
     Active Substance: MYCOPHENOLATE SODIUM
     Dosage: 360 MG, Q12H

REACTIONS (6)
  - Tubulointerstitial nephritis [Recovering/Resolving]
  - Renal impairment [Recovering/Resolving]
  - Malacoplakia vesicae [Recovered/Resolved]
  - Complications of transplanted kidney [Recovering/Resolving]
  - Urinary tract infection [Recovering/Resolving]
  - Escherichia infection [Recovering/Resolving]
